FAERS Safety Report 8840348 (Version 5)
Quarter: 2017Q4

REPORT INFORMATION
  Report Type: Spontaneous
  Country: US (occurrence: US)
  Receive Date: 20121015
  Receipt Date: 20171119
  Transmission Date: 20180321
  Serious: Yes (Hospitalization, Disabling, Other)
  Sender: FDA-Public Use
  Company Number: US-009507513-1210USA003116

PATIENT
  Sex: Female

DRUGS (3)
  1. FOSAMAX [Suspect]
     Active Substance: ALENDRONATE SODIUM
     Indication: OSTEOPENIA
  2. ALENDRONATE SODIUM. [Suspect]
     Active Substance: ALENDRONATE SODIUM
     Indication: OSTEOPOROSIS
     Dosage: 70 MG, QW
     Route: 048
     Dates: start: 200803, end: 201201
  3. FOSAMAX [Suspect]
     Active Substance: ALENDRONATE SODIUM
     Indication: OSTEOPOROSIS
     Dosage: 70 MG, QW
     Route: 048
     Dates: start: 200306, end: 200803

REACTIONS (23)
  - Pyrexia [Recovered/Resolved]
  - Impaired healing [Recovered/Resolved with Sequelae]
  - Claustrophobia [Unknown]
  - Panic attack [Unknown]
  - Foot fracture [Recovering/Resolving]
  - Gastrooesophageal reflux disease [Unknown]
  - Hypertension [Unknown]
  - Aortic arteriosclerosis [Unknown]
  - Iron deficiency anaemia [Unknown]
  - Hysterectomy [Unknown]
  - Low turnover osteopathy [Not Recovered/Not Resolved]
  - Fall [Unknown]
  - Nasopharyngitis [Unknown]
  - Syncope [Unknown]
  - Anxiety [Unknown]
  - Pulmonary granuloma [Unknown]
  - Pelvic prolapse [Unknown]
  - Femur fracture [Recovered/Resolved with Sequelae]
  - Tooth extraction [Unknown]
  - Abdominal pain [Unknown]
  - Lung disorder [Unknown]
  - Chest pain [Unknown]
  - Spinal osteoarthritis [Unknown]

NARRATIVE: CASE EVENT DATE: 200403
